FAERS Safety Report 14895281 (Version 1)
Quarter: 2018Q2

REPORT INFORMATION
  Report Type: Spontaneous
  Country: US (occurrence: US)
  Receive Date: 20180427
  Receipt Date: 20180427
  Transmission Date: 20180711
  Serious: Yes (Death)
  Sender: FDA-Public Use
  Company Number: None

PATIENT
  Age: 74 Year
  Sex: Female

DRUGS (20)
  1. VENTOLIN HFA [Concomitant]
     Active Substance: ALBUTEROL SULFATE
  2. VITAMIN D3 [Concomitant]
     Active Substance: CHOLECALCIFEROL
  3. SPIRIVA [Concomitant]
     Active Substance: TIOTROPIUM BROMIDE MONOHYDRATE
  4. SINGULAIR [Concomitant]
     Active Substance: MONTELUKAST SODIUM
  5. ATORVASTATIN [Concomitant]
     Active Substance: ATORVASTATIN
  6. AMIODARONE [Concomitant]
     Active Substance: AMIODARONE
  7. CYMBALTA [Concomitant]
     Active Substance: DULOXETINE HYDROCHLORIDE
  8. FLUZONE HD [Concomitant]
  9. XOLAIR [Suspect]
     Active Substance: OMALIZUMAB
     Indication: ASTHMA
     Route: 058
     Dates: start: 20170307
  10. KLOR-CON M10 TAB [Concomitant]
  11. ROPINROLE [Concomitant]
  12. FERROUS SULF [Concomitant]
     Active Substance: FERROUS SULFATE
  13. FISH OIL [Concomitant]
     Active Substance: FISH OIL
  14. BROVANA [Concomitant]
     Active Substance: ARFORMOTEROL TARTRATE
  15. ELIQUIS [Concomitant]
     Active Substance: APIXABAN
  16. GLIMEPIRIDE. [Concomitant]
     Active Substance: GLIMEPIRIDE
  17. HYDROCHLOROT TAB [Concomitant]
  18. LEVOCETIRIZI TAB [Concomitant]
  19. METOPROL TAR [Concomitant]
  20. CALCIUM [Concomitant]
     Active Substance: CALCIUM

REACTIONS (1)
  - Death [None]
